FAERS Safety Report 4488350-4 (Version None)
Quarter: 2004Q4

REPORT INFORMATION
  Report Type: 
  Country: None (occurrence: None)
  Receive Date: 20041026
  Receipt Date: 20041015
  Transmission Date: 20050328
  Serious: Yes (Hospitalization)
  Sender: FDA-Public Use
  Company Number: 177042

PATIENT
  Age: 43 Year
  Sex: Female
  Weight: 111.1313 kg

DRUGS (3)
  1. AVONEX [Suspect]
     Indication: MULTIPLE SCLEROSIS
     Dosage: 30 MCG QW IM
     Route: 030
     Dates: start: 20010401
  2. PROZAC [Concomitant]
  3. PREVACID [Concomitant]

REACTIONS (6)
  - ABDOMINAL PAIN [None]
  - CARTILAGE INJURY [None]
  - REFUSAL OF TREATMENT BY PATIENT [None]
  - TENDERNESS [None]
  - URINARY INCONTINENCE [None]
  - WHITE BLOOD CELL COUNT INCREASED [None]
